FAERS Safety Report 18066650 (Version 1)
Quarter: 2020Q3

REPORT INFORMATION
  Report Type: Other
  Country: CA (occurrence: CA)
  Receive Date: 20200724
  Receipt Date: 20200724
  Transmission Date: 20201103
  Serious: Yes (Other)
  Sender: FDA-Public Use
  Company Number: CA-ASPEN-GLO2020CA006972

PATIENT
  Age: 1 Day

DRUGS (1)
  1. DESOGESTREL, ETHINYLESTRADIOL [Suspect]
     Active Substance: DESOGESTREL
     Indication: PRODUCT USED FOR UNKNOWN INDICATION
     Dosage: 1 DF, 1 EVERY 1 DAYS
     Route: 064

REACTIONS (1)
  - Premature baby [Unknown]
